FAERS Safety Report 16425539 (Version 1)
Quarter: 2019Q2

REPORT INFORMATION
  Report Type: Spontaneous
  Country: US (occurrence: US)
  Receive Date: 20190613
  Receipt Date: 20190613
  Transmission Date: 20190711
  Serious: No
  Sender: FDA-Public Use
  Company Number: US-PFIZER INC-2019247199

PATIENT
  Sex: Female

DRUGS (4)
  1. CYTOMEL [Suspect]
     Active Substance: LIOTHYRONINE SODIUM
     Dosage: 5 MG, UNK
  2. T4 [Concomitant]
     Active Substance: LEVOTHYROXINE
     Dosage: 68 UG, DAILY
  3. T4 [Concomitant]
     Active Substance: LEVOTHYROXINE
     Dosage: 88 UG, DAILY
  4. T4 [Concomitant]
     Active Substance: LEVOTHYROXINE
     Dosage: 75 UG, DAILY

REACTIONS (2)
  - Blood thyroid stimulating hormone decreased [Unknown]
  - Blood calcium increased [Unknown]
